FAERS Safety Report 4898672-0 (Version None)
Quarter: 2006Q1

REPORT INFORMATION
  Report Type: 
  Country: None (occurrence: None)
  Receive Date: 20060202
  Receipt Date: 20010426
  Transmission Date: 20060701
  Serious: Yes (Life-Threatening)
  Sender: FDA-Public Use
  Company Number: US-2001-BP-01415

PATIENT
  Age: 18 Month
  Sex: Female

DRUGS (3)
  1. NEVIRAPINE [Suspect]
     Indication: ACQUIRED IMMUNODEFICIENCY SYNDROME
     Route: 048
  2. PARACETAMOL [Concomitant]
  3. PROCHLORPERAZINE [Concomitant]

REACTIONS (4)
  - ANAEMIA [None]
  - DIZZINESS [None]
  - LOWER RESPIRATORY TRACT INFECTION [None]
  - MALAISE [None]
